FAERS Safety Report 10064031 (Version 2)
Quarter: 2014Q2

REPORT INFORMATION
  Report Type: Spontaneous
  Country: IT (occurrence: IT)
  Receive Date: 20140408
  Receipt Date: 20140529
  Transmission Date: 20141212
  Serious: Yes (Hospitalization)
  Sender: FDA-Public Use
  Company Number: IT-009507513-1404ITA000008

PATIENT
  Age: 58 Year
  Sex: Male

DRUGS (2)
  1. CARBIDOPA (+) LEVODOPA [Suspect]
     Indication: PARKINSON^S DISEASE
     Dosage: 3 TABLETS (1+1+1),QD
     Route: 048
  2. CARBIDOPA (+) LEVODOPA [Suspect]
     Dosage: 12 TABLETS (4+4+4),TOTAL
     Route: 048
     Dates: start: 20131123, end: 20131123

REACTIONS (2)
  - Neurological symptom [Recovered/Resolved]
  - Medication error [Recovered/Resolved]
